FAERS Safety Report 25973201 (Version 1)
Quarter: 2025Q4

REPORT INFORMATION
  Report Type: Spontaneous
  Country: US (occurrence: US)
  Receive Date: 20251029
  Receipt Date: 20251029
  Transmission Date: 20260118
  Serious: No
  Sender: ROCHE
  Company Number: US-ROCHE-10000415169

PATIENT
  Age: 66 Year
  Sex: Female

DRUGS (3)
  1. VISMODEGIB [Suspect]
     Active Substance: VISMODEGIB
     Indication: Basal cell carcinoma
     Route: 065
  2. SONIDEGIB [Concomitant]
     Active Substance: SONIDEGIB
  3. MINOXIDIL [Concomitant]
     Active Substance: MINOXIDIL

REACTIONS (2)
  - Alopecia [Recovering/Resolving]
  - Muscle spasms [Unknown]
